FAERS Safety Report 6590525-5 (Version None)
Quarter: 2010Q1

REPORT INFORMATION
  Report Type: 
  Country: None (occurrence: None)
  Receive Date: 20100219
  Receipt Date: 20100210
  Transmission Date: 20100710
  Serious: Yes (Hospitalization, Other)
  Sender: FDA-Public Use
  Company Number: FR-ROCHE-685458

PATIENT
  Sex: Female
  Weight: 79 kg

DRUGS (4)
  1. TRASTUZUMAB [Suspect]
     Dosage: LAST DOSE PRIOR SAE: 31 JULY 2008 AND 08 AUG 2008.
     Route: 042
     Dates: start: 20080404
  2. NAVELBINE [Suspect]
     Dosage: LAST DOSE PRIOR SAE: 31 JULY 2008 AND 08 AUG 2008.
     Route: 042
     Dates: start: 20080404
  3. PRAVASTATIN [Concomitant]
  4. PANTOPRAZOLE [Concomitant]
     Dates: start: 20080727

REACTIONS (5)
  - DEVICE RELATED INFECTION [None]
  - DYSURIA [None]
  - ESCHERICHIA INFECTION [None]
  - PYREXIA [None]
  - REFLUX OESOPHAGITIS [None]
